FAERS Safety Report 13679771 (Version 1)
Quarter: 2017Q2

REPORT INFORMATION
  Report Type: Spontaneous
  Country: JP (occurrence: JP)
  Receive Date: 20170622
  Receipt Date: 20170622
  Transmission Date: 20170830
  Serious: Yes (Other)
  Sender: FDA-Public Use
  Company Number: JP-CELGENEUS-JPN-20170605590

PATIENT

DRUGS (2)
  1. ABRAXANE [Suspect]
     Active Substance: PACLITAXEL
     Indication: NON-SMALL CELL LUNG CANCER
     Dosage: 70-100MG/M2
     Route: 041
  2. CARBOPLATIN. [Suspect]
     Active Substance: CARBOPLATIN
     Indication: NON-SMALL CELL LUNG CANCER
     Route: 041

REACTIONS (12)
  - Neutropenia [Unknown]
  - Neurotoxicity [Unknown]
  - Thrombocytopenia [Unknown]
  - Non-small cell lung cancer [Unknown]
  - Alopecia [Unknown]
  - Gastrointestinal disorder [Unknown]
  - Vertigo [Unknown]
  - Anaemia [Unknown]
  - Oedema [Unknown]
  - Peripheral sensory neuropathy [Unknown]
  - Bone marrow failure [Unknown]
  - Leukopenia [Unknown]
